FAERS Safety Report 9986122 (Version 1)
Quarter: 2014Q1

REPORT INFORMATION
  Report Type: Spontaneous
  Country: US (occurrence: US)
  Receive Date: 20140307
  Receipt Date: 20140307
  Transmission Date: 20141002
  Serious: No
  Sender: FDA-Public Use
  Company Number: US-ABBVIE-13P-163-1087374-00

PATIENT
  Sex: Female
  Weight: 62.65 kg

DRUGS (5)
  1. HUMIRA [Suspect]
     Indication: SPONDYLOARTHROPATHY
     Dates: start: 201303
  2. SYNTHROID [Concomitant]
     Indication: THYROIDECTOMY
     Dates: start: 201210
  3. CYTOMEL [Concomitant]
     Indication: THYROIDECTOMY
     Dates: start: 201210
  4. DICLOFENAC [Concomitant]
     Indication: PAIN
  5. METFORMIN ER [Concomitant]
     Indication: DIABETES MELLITUS

REACTIONS (2)
  - Injection site haemorrhage [Recovered/Resolved]
  - Injection site pain [Recovered/Resolved]
